FAERS Safety Report 19643050 (Version 3)
Quarter: 2021Q3

REPORT INFORMATION
  Report Type: Report from Study
  Country: IL (occurrence: IL)
  Receive Date: 20210730
  Receipt Date: 20210916
  Transmission Date: 20211014
  Serious: Yes (Hospitalization)
  Sender: FDA-Public Use
  Company Number: IL-JNJFOC-20210701821

PATIENT
  Age: 59 Year
  Sex: Female
  Weight: 82 kg

DRUGS (4)
  1. AMIVANTAMAB. [Suspect]
     Active Substance: AMIVANTAMAB
     Indication: NON-SMALL CELL LUNG CANCER
     Dosage: MOST RECENT DOSE ON 08?JUL?2021
     Route: 042
     Dates: start: 20210615, end: 20210622
  2. PEMETREXED. [Suspect]
     Active Substance: PEMETREXED
     Indication: NON-SMALL CELL LUNG CANCER
     Route: 042
     Dates: start: 20210614, end: 20210708
  3. CARBOPLATIN. [Suspect]
     Active Substance: CARBOPLATIN
     Indication: NON-SMALL CELL LUNG CANCER
     Dosage: ALSO REPORTED AS 737 MG; MOST RECENT DOSE 08?JUL?2021
     Route: 042
     Dates: start: 20210614
  4. AMIVANTAMAB. [Suspect]
     Active Substance: AMIVANTAMAB
     Dosage: MOST RECENT DOSE: 08?JUL?2021
     Route: 042
     Dates: start: 20210615, end: 20210708

REACTIONS (2)
  - Rash pustular [Recovering/Resolving]
  - Skin infection [Unknown]

NARRATIVE: CASE EVENT DATE: 20210629
